FAERS Safety Report 4329849-0 (Version None)
Quarter: 2004Q1

REPORT INFORMATION
  Report Type: 
  Country: None (occurrence: None)
  Receive Date: 20040329
  Receipt Date: 20021024
  Transmission Date: 20041129
  Serious: Yes (Hospitalization)
  Sender: FDA-Public Use
  Company Number: 2002IC000308

PATIENT
  Age: 67 Year
  Sex: Male

DRUGS (11)
  1. FLUOROURACIL [Suspect]
     Indication: GASTRIC CANCER
     Dosage: GM, INTRAVENOUS
     Route: 042
     Dates: start: 20010112, end: 20010119
  2. FLUOROURACIL [Suspect]
     Indication: GASTRIC CANCER
     Dosage: GM, INTRAVENOUS
     Route: 042
     Dates: start: 20010215, end: 20010301
  3. ISOVORIN [Suspect]
     Indication: GASTRIC CANCER
     Dosage: 400 MG; INTRAVENOUS
     Route: 042
     Dates: start: 20010112, end: 20010119
  4. ISOVORIN [Suspect]
     Indication: GASTRIC CANCER
     Dosage: 400 MG; INTRAVENOUS
     Route: 042
     Dates: start: 20010215, end: 20010301
  5. TIENAM (IMIPENEM/CILASTATIN) [Suspect]
     Indication: GASTRIC CANCER
     Dosage: SEE IMAGE
     Route: 042
     Dates: start: 20010126, end: 20010126
  6. TIENAM (IMIPENEM/CILASTATIN) [Suspect]
     Indication: GASTRIC CANCER
     Dosage: SEE IMAGE
     Route: 042
     Dates: start: 20010127, end: 20010204
  7. TIENAM (IMIPENEM/CILASTATIN) [Suspect]
     Indication: GASTRIC CANCER
     Dosage: SEE IMAGE
     Route: 042
     Dates: start: 20010205, end: 20010205
  8. CARBENIN [Concomitant]
  9. NEUTROGIN [Concomitant]
  10. LASIX [Concomitant]
  11. NEUTROGIN (GENETICAL RECOMBINATION) [Concomitant]

REACTIONS (4)
  - BONE MARROW DEPRESSION [None]
  - EOSINOPHILIA [None]
  - PYREXIA [None]
  - SEPSIS [None]
